FAERS Safety Report 9128754 (Version 2)
Quarter: 2013Q2

REPORT INFORMATION
  Report Type: Spontaneous
  Country: GR (occurrence: GR)
  Receive Date: 20130125
  Receipt Date: 20130412
  Transmission Date: 20140414
  Serious: Yes (Hospitalization)
  Sender: FDA-Public Use
  Company Number: PHHY2013GR005955

PATIENT
  Age: 52 Year
  Sex: Male

DRUGS (1)
  1. GILENYA [Suspect]
     Indication: MULTIPLE SCLEROSIS
     Route: 048
     Dates: start: 20120710

REACTIONS (5)
  - Dysphonia [Unknown]
  - Amnesia [Unknown]
  - Gait disturbance [Unknown]
  - Incontinence [Unknown]
  - Hypoaesthesia [Unknown]
